FAERS Safety Report 6150017-4 (Version None)
Quarter: 2009Q2

REPORT INFORMATION
  Report Type: 
  Country: None (occurrence: None)
  Receive Date: 20090409
  Receipt Date: 20090406
  Transmission Date: 20091009
  Serious: Yes (Life-Threatening)
  Sender: FDA-Public Use
  Company Number: B0567829A

PATIENT
  Sex: Female
  Weight: 86 kg

DRUGS (2)
  1. ARIXTRA [Suspect]
     Indication: PULMONARY EMBOLISM
     Dosage: 7.5MG PER DAY
     Route: 058
     Dates: start: 20081216, end: 20081224
  2. PREVISCAN [Suspect]
     Indication: PULMONARY EMBOLISM
     Dosage: 20MG PER DAY
     Route: 048
     Dates: start: 20081218, end: 20081224

REACTIONS (1)
  - SHOCK HAEMORRHAGIC [None]
